FAERS Safety Report 8974529 (Version 2)
Quarter: 2013Q1

REPORT INFORMATION
  Report Type: Spontaneous
  Country: IT (occurrence: IT)
  Receive Date: 20121220
  Receipt Date: 20130120
  Transmission Date: 20140127
  Serious: Yes (Hospitalization)
  Sender: FDA-Public Use
  Company Number: IT-009507513-1212ITA004949

PATIENT
  Age: 15 Year
  Sex: Female

DRUGS (8)
  1. TRIMETON [Suspect]
     Indication: INTENTIONAL OVERDOSE
     Dosage: 80 MG (20 POSOLOGIC UNITS) TOTAL
     Route: 048
     Dates: start: 20121130, end: 20121130
  2. TINSET [Suspect]
     Indication: INTENTIONAL OVERDOSE
     Dosage: 750MG/30 ML TOTAL
     Route: 048
     Dates: start: 20121130, end: 20121130
  3. ORUDIS [Suspect]
     Indication: INTENTIONAL OVERDOSE
     Dosage: 6000 MG (30 POSOLOGIC UNITS) TOTAL
     Route: 048
     Dates: start: 20121130, end: 20121130
  4. IMODIUM [Suspect]
     Indication: INTENTIONAL OVERDOSE
     Dosage: 16 MG (8 POSOLOGIC UNITS) TOTAL
     Route: 048
     Dates: start: 20121130, end: 20121130
  5. PERIDON [Suspect]
     Indication: INTENTIONAL OVERDOSE
     Dosage: 300 MG (30 POSOLOGIC UNITS) TOTAL
     Route: 048
     Dates: start: 20121130, end: 20121130
  6. TAREG [Suspect]
     Indication: INTENTIONAL OVERDOSE
     Dosage: 1120 MG (14 POSOLOGIC UNITS) TOTAL
     Route: 048
     Dates: start: 20121130, end: 20121130
  7. IBUPROFEN [Suspect]
     Indication: INTENTIONAL OVERDOSE
     Dosage: 1200 MG (6 POSOLOGIC UNITS) TOTAL
     Route: 048
     Dates: start: 20121130, end: 20121130
  8. BUSCOPAN [Suspect]
     Indication: INTENTIONAL OVERDOSE
     Dosage: 100 MG (POSOLOGIC UNITS) TOTAL
     Route: 048
     Dates: start: 20121130, end: 20121130

REACTIONS (4)
  - Asthenia [Recovered/Resolved]
  - Hypotension [Recovered/Resolved]
  - Sopor [Recovered/Resolved]
  - Intentional overdose [Recovered/Resolved]
